FAERS Safety Report 10086231 (Version 1)
Quarter: 2014Q2

REPORT INFORMATION
  Report Type: Report from Study
  Country: US (occurrence: US)
  Receive Date: 20140418
  Receipt Date: 20140418
  Transmission Date: 20141212
  Serious: Yes (Disabling)
  Sender: FDA-Public Use
  Company Number: US-SA-2014SA042781

PATIENT
  Sex: 0

DRUGS (2)
  1. LANTUS SOLOSTAR [Suspect]
     Indication: DIABETES MELLITUS
     Dosage: DOSE:15 UNIT(S)
     Route: 065
  2. SOLOSTAR [Concomitant]

REACTIONS (2)
  - Exostosis [Unknown]
  - Hypertension [Unknown]
